FAERS Safety Report 26123763 (Version 2)
Quarter: 2025Q4

REPORT INFORMATION
  Report Type: Other
  Country: GB (occurrence: GB)
  Receive Date: 20251205
  Receipt Date: 20251215
  Transmission Date: 20260119
  Serious: Yes (Life-Threatening, Hospitalization, Disabling, Other)
  Sender: MACLEODS
  Company Number: None

PATIENT

DRUGS (3)
  1. VARENICLINE [Suspect]
     Active Substance: VARENICLINE
     Indication: Ex-tobacco user
     Dosage: I BELIEVE 1MG VARENICLINE PER DAY, I THINK
     Dates: start: 20241101
  2. Milpharm Omeprazole [Concomitant]
     Indication: Hiatus hernia
     Dates: start: 20120601
  3. Milpharm Omeprazole [Concomitant]
     Indication: Dyspepsia

REACTIONS (8)
  - Cardiac arrest [Unknown]
  - Organ failure [Unknown]
  - Coma [Unknown]
  - Medication error [Unknown]
  - Myocardial infarction [Recovered/Resolved with Sequelae]
  - Gait disturbance [Unknown]
  - Impaired quality of life [Unknown]
  - Impaired work ability [Unknown]

NARRATIVE: CASE EVENT DATE: 20250402
